FAERS Safety Report 15677103 (Version 3)
Quarter: 2019Q1

REPORT INFORMATION
  Report Type: Spontaneous
  Country: US (occurrence: US)
  Receive Date: 20181130
  Receipt Date: 20190129
  Transmission Date: 20190417
  Serious: No
  Sender: FDA-Public Use
  Company Number: US-PFIZER INC-2018488294

PATIENT
  Age: 81 Year
  Sex: Female

DRUGS (2)
  1. LIPITOR [Suspect]
     Active Substance: ATORVASTATIN CALCIUM
     Dosage: UNK
  2. ATORVASTATIN CALCIUM. [Suspect]
     Active Substance: ATORVASTATIN CALCIUM
     Dosage: 1 DF, DAILY (1 PILL DAILY FOR 3 DAYS)

REACTIONS (7)
  - Cough [Unknown]
  - Arthralgia [Unknown]
  - Drug ineffective [Unknown]
  - Product prescribing error [Unknown]
  - Swelling [Unknown]
  - Joint swelling [Unknown]
  - Product dispensing error [Unknown]
